FAERS Safety Report 24458852 (Version 1)
Quarter: 2024Q4

REPORT INFORMATION
  Report Type: Report from Study
  Country: US (occurrence: US)
  Receive Date: 20241018
  Receipt Date: 20241018
  Transmission Date: 20250115
  Serious: No
  Sender: ROCHE
  Company Number: US-ROCHE-3514706

PATIENT
  Age: 62 Year
  Sex: Female
  Weight: 75.75 kg

DRUGS (44)
  1. RITUXAN [Suspect]
     Active Substance: RITUXIMAB
     Indication: Rheumatoid arthritis
     Dosage: ON AN UNSPECIFIED DATE IN /AUG/2021, SHE RECEIVED LAST INFUSION OF RITUXIMAB.
     Route: 041
  2. ACTEMRA [Suspect]
     Active Substance: TOCILIZUMAB
     Indication: Rheumatoid arthritis
     Route: 065
  3. PLAQUENIL [Concomitant]
     Active Substance: HYDROXYCHLOROQUINE SULFATE
  4. METHOTREXATE [Concomitant]
     Active Substance: METHOTREXATE
  5. HUMIRA [Concomitant]
     Active Substance: ADALIMUMAB
  6. ENBREL [Concomitant]
     Active Substance: ETANERCEPT
  7. IMURAN [Concomitant]
     Active Substance: AZATHIOPRINE
  8. ORENCIA [Concomitant]
     Active Substance: ABATACEPT
  9. XELJANZ [Concomitant]
     Active Substance: TOFACITINIB CITRATE
  10. NITROGLYCERIN [Concomitant]
     Active Substance: NITROGLYCERIN
  11. MEDROL [Concomitant]
     Active Substance: METHYLPREDNISOLONE
  12. LANSOPRAZOLE [Concomitant]
     Active Substance: LANSOPRAZOLE
  13. METHYLPREDNISOLONE [Concomitant]
     Active Substance: METHYLPREDNISOLONE
  14. HYOSCYAMINE [Concomitant]
     Active Substance: HYOSCYAMINE
  15. SUMATRIPTAN [Concomitant]
     Active Substance: SUMATRIPTAN
  16. METHOCARBAMOL [Concomitant]
     Active Substance: METHOCARBAMOL
  17. NARCO [Concomitant]
  18. LEVOTHYROXINE [Concomitant]
     Active Substance: LEVOTHYROXINE
  19. LIDOCAINE [Concomitant]
     Active Substance: LIDOCAINE
  20. ATENOLOL [Concomitant]
     Active Substance: ATENOLOL
  21. DEMEROL [Concomitant]
     Active Substance: MEPERIDINE HYDROCHLORIDE
  22. DEXAMETHASONE [Concomitant]
     Active Substance: DEXAMETHASONE
  23. VOLTAREN [Concomitant]
     Active Substance: DICLOFENAC SODIUM
  24. DOMPERIDONE [Concomitant]
     Active Substance: DOMPERIDONE
  25. ASMANEX [Concomitant]
     Active Substance: MOMETASONE FUROATE
  26. ALBUTEROL [Concomitant]
     Active Substance: ALBUTEROL
  27. CARAFATE [Concomitant]
     Active Substance: SUCRALFATE
  28. ZOFRAN [Concomitant]
     Active Substance: ONDANSETRON HYDROCHLORIDE
  29. ZEGERID [Concomitant]
     Active Substance: OMEPRAZOLE\SODIUM BICARBONATE
  30. NITROGLYCERIN [Concomitant]
     Active Substance: NITROGLYCERIN
  31. LINZESS [Concomitant]
     Active Substance: LINACLOTIDE
  32. TETRACYCLINE HYDROCHLORIDE [Concomitant]
     Active Substance: TETRACYCLINE HYDROCHLORIDE
  33. POTASSIUM GLUCONATE [Concomitant]
     Active Substance: POTASSIUM GLUCONATE
  34. PROGESTERONE [Concomitant]
     Active Substance: PROGESTERONE
  35. ERGOCALCIFEROL [Concomitant]
     Active Substance: ERGOCALCIFEROL
  36. CALCIUM [Concomitant]
     Active Substance: CALCIUM
  37. MAGNESIUM [Concomitant]
     Active Substance: MAGNESIUM
  38. VITAMIN A [Concomitant]
     Active Substance: VITAMIN A
  39. BIOTIN [Concomitant]
     Active Substance: BIOTIN
  40. CHAMOMILE [Concomitant]
     Active Substance: CHAMOMILE
  41. GABA [GAMMA-AMINOBUTYRIC ACID] [Concomitant]
  42. B12 [Concomitant]
  43. FOLIC ACID [Concomitant]
     Active Substance: FOLIC ACID
  44. ASCORBIC ACID [Concomitant]
     Active Substance: ASCORBIC ACID

REACTIONS (6)
  - Gastritis [Unknown]
  - Mouth ulceration [Unknown]
  - Fatigue [Unknown]
  - Dry eye [Unknown]
  - Osteoporosis [Unknown]
  - Dry mouth [Unknown]
